FAERS Safety Report 10201840 (Version 1)
Quarter: 2014Q2

REPORT INFORMATION
  Report Type: Spontaneous
  Country: US (occurrence: US)
  Receive Date: 20140528
  Receipt Date: 20140528
  Transmission Date: 20141212
  Serious: Yes (Other)
  Sender: FDA-Public Use
  Company Number: US-BRISTOL-MYERS SQUIBB COMPANY-19243666

PATIENT
  Age: 33 Year
  Sex: Male

DRUGS (5)
  1. ARIPIPRAZOLE [Suspect]
     Route: 048
  2. METFORMIN HCL [Suspect]
  3. ABILIFY MAINTENA INJECTION [Suspect]
     Dates: start: 2013
  4. WELLBUTRIN [Concomitant]
  5. LYRICA [Concomitant]

REACTIONS (1)
  - Blood glucose increased [Unknown]
